FAERS Safety Report 11244969 (Version 6)
Quarter: 2016Q1

REPORT INFORMATION
  Report Type: Spontaneous
  Country: JP (occurrence: JP)
  Receive Date: 20150707
  Receipt Date: 20160324
  Transmission Date: 20160525
  Serious: Yes (Life-Threatening, Hospitalization)
  Sender: FDA-Public Use
  Company Number: PHJP2015JP007167

PATIENT
  Age: 79 Year
  Sex: Female
  Weight: 45 kg

DRUGS (2)
  1. TASIGNA [Suspect]
     Active Substance: NILOTINIB
     Indication: CHRONIC MYELOID LEUKAEMIA
     Dosage: UNK
     Route: 065
     Dates: start: 201504
  2. GLIVEC [Suspect]
     Active Substance: IMATINIB MESYLATE
     Indication: CHRONIC MYELOID LEUKAEMIA
     Dosage: 400 MG, QD
     Route: 048
     Dates: start: 200205, end: 20150424

REACTIONS (13)
  - Dieulafoy^s vascular malformation [Recovering/Resolving]
  - Hypoalbuminaemia [Unknown]
  - Gastrointestinal erosion [Recovering/Resolving]
  - Shock haemorrhagic [Recovering/Resolving]
  - Small intestinal haemorrhage [Recovering/Resolving]
  - Faeces discoloured [Unknown]
  - Haematochezia [Recovered/Resolved]
  - Anaemia [Unknown]
  - Depressed level of consciousness [Recovering/Resolving]
  - Leukopenia [Recovered/Resolved]
  - Blood pressure systolic decreased [Recovering/Resolving]
  - Gastrointestinal telangiectasia [Unknown]
  - Platelet count decreased [Not Recovered/Not Resolved]

NARRATIVE: CASE EVENT DATE: 20150218
